FAERS Safety Report 9417848 (Version 1)
Quarter: 2013Q3

REPORT INFORMATION
  Report Type: Spontaneous
  Country: US (occurrence: US)
  Receive Date: 20130724
  Receipt Date: 20130724
  Transmission Date: 20140515
  Serious: No
  Sender: FDA-Public Use
  Company Number: US-BAUSCH-BL-2013-000236

PATIENT
  Age: 76 Year
  Sex: Female
  Weight: 63.56 kg

DRUGS (4)
  1. OPCON-A [Suspect]
     Indication: EYE ALLERGY
     Dosage: 1 DROP IN EACH EYE; ONCE DAILY; OPHTHALMIC
     Route: 047
     Dates: start: 20130104, end: 20130107
  2. EZETIMIBE [Concomitant]
  3. ESTRADIOL [Concomitant]
  4. ACETYLSALICYLIC ACID [Concomitant]

REACTIONS (1)
  - Eye irritation [Recovered/Resolved]
